FAERS Safety Report 15007388 (Version 4)
Quarter: 2018Q3

REPORT INFORMATION
  Report Type: Spontaneous
  Country: CH (occurrence: CH)
  Receive Date: 20180613
  Receipt Date: 20180903
  Transmission Date: 20181010
  Serious: Yes (Other)
  Sender: FDA-Public Use
  Company Number: PHHY2018CH019399

PATIENT
  Sex: Female
  Weight: 65 kg

DRUGS (1)
  1. GILENYA [Suspect]
     Active Substance: FINGOLIMOD HYDROCHLORIDE
     Indication: MULTIPLE SCLEROSIS
     Dosage: 0.5 MG, UNK
     Route: 065
     Dates: end: 20170629

REACTIONS (12)
  - Douglas^ abscess [Unknown]
  - Neoplasm progression [Recovering/Resolving]
  - Rectal cancer [Recovering/Resolving]
  - Pulmonary oedema [Unknown]
  - Vaginal fistula [Unknown]
  - Hypertonia [Unknown]
  - Omental necrosis [Unknown]
  - Vaginal discharge [Unknown]
  - General physical health deterioration [Unknown]
  - Hydronephrosis [Unknown]
  - Pulmonary mass [Unknown]
  - Fibrosis [Unknown]

NARRATIVE: CASE EVENT DATE: 20160629
